FAERS Safety Report 4766040-8 (Version None)
Quarter: 2005Q3

REPORT INFORMATION
  Report Type: 
  Country: None (occurrence: None)
  Receive Date: 20050912
  Receipt Date: 20050831
  Transmission Date: 20060218
  Serious: Yes (Life-Threatening)
  Sender: FDA-Public Use
  Company Number: FR-GLAXOSMITHKLINE-B0392754A

PATIENT
  Age: 59 Year
  Sex: Male
  Weight: 94 kg

DRUGS (3)
  1. ONDANSETRON [Suspect]
     Dosage: 8MG CYCLIC
     Route: 042
     Dates: start: 20050817, end: 20050817
  2. FOLINATE DE CALCIUM [Suspect]
     Dosage: 836MG CYCLIC
     Route: 042
     Dates: start: 20050817, end: 20050817
  3. ELOXATIN [Suspect]
     Dosage: 177MG CYCLIC
     Route: 042
     Dates: start: 20050817, end: 20050817

REACTIONS (6)
  - ABDOMINAL PAIN UPPER [None]
  - ANGIONEUROTIC OEDEMA [None]
  - CHEILITIS [None]
  - FACE OEDEMA [None]
  - PRURITUS [None]
  - RASH PRURITIC [None]
